FAERS Safety Report 9028758 (Version 1)
Quarter: 2013Q1

REPORT INFORMATION
  Report Type: Spontaneous
  Country: US (occurrence: US)
  Receive Date: 20130124
  Receipt Date: 20130124
  Transmission Date: 20140127
  Serious: No
  Sender: FDA-Public Use
  Company Number: US-PFIZER INC-2013026541

PATIENT
  Age: 66 Year
  Sex: Male

DRUGS (11)
  1. SUTENT [Suspect]
     Indication: RENAL CANCER
     Dosage: UNK
     Dates: start: 20130103
  2. ASPIRIN (E.C.) [Concomitant]
     Dosage: UNK
  3. CLONIDINE HYDROCHLORIDE [Concomitant]
     Dosage: UNK
  4. LISINOPRIL [Concomitant]
     Dosage: UNK
  5. METFORMIN HYDROCHLORIDE [Concomitant]
     Dosage: UNK
  6. METOCLOPRAMIDE HYDROCHLORIDE [Concomitant]
     Dosage: UNK
  7. OXYCONTIN [Concomitant]
     Dosage: UNK
  8. RANITIDINE HYDROCHLORIDE [Concomitant]
     Dosage: UNK
  9. SERTRALINE HYDROCHLORIDE [Concomitant]
     Dosage: UNK
  10. SIMVASTATIN [Concomitant]
     Dosage: UNK
  11. STOOL SOFTENER [Concomitant]
     Dosage: UNK

REACTIONS (2)
  - Nausea [Unknown]
  - Hypertension [Unknown]
